FAERS Safety Report 6750080-3 (Version None)
Quarter: 2010Q2

REPORT INFORMATION
  Report Type: 
  Country: None (occurrence: None)
  Receive Date: 20100527
  Receipt Date: 20100527
  Transmission Date: 20101027
  Serious: Yes (Hospitalization)
  Sender: FDA-Public Use
  Company Number: None

PATIENT
  Sex: Female
  Weight: 78.4269 kg

DRUGS (5)
  1. CISPLATIN [Suspect]
     Indication: ADENOCARCINOMA
     Dosage: 75 MG/M^2 -134 MG- EVERY 21 DAYS IV DRIP
     Route: 041
     Dates: start: 20100510, end: 20100510
  2. CISPLATIN [Suspect]
     Indication: NON-SMALL CELL LUNG CANCER
     Dosage: 75 MG/M^2 -134 MG- EVERY 21 DAYS IV DRIP
     Route: 041
     Dates: start: 20100510, end: 20100510
  3. PEMETREXED [Suspect]
     Indication: ADENOCARCINOMA
     Dosage: 500 MG/M^2 - 895 MG EVERY 21 DAYS IVDRIP
     Route: 041
     Dates: start: 20100510, end: 20100510
  4. PEMETREXED [Suspect]
     Indication: NON-SMALL CELL LUNG CANCER
     Dosage: 500 MG/M^2 - 895 MG EVERY 21 DAYS IVDRIP
     Route: 041
     Dates: start: 20100510, end: 20100510
  5. VORINOSTAT [Concomitant]

REACTIONS (2)
  - DRUG DOSE OMISSION [None]
  - NON-CARDIAC CHEST PAIN [None]
